FAERS Safety Report 7971717-7 (Version None)
Quarter: 2011Q4

REPORT INFORMATION
  Report Type: 
  Country: None (occurrence: None)
  Receive Date: 20111212
  Receipt Date: 20111130
  Transmission Date: 20120403
  Serious: Yes (Hospitalization)
  Sender: FDA-Public Use
  Company Number: JP-ACTELION-A-CH2011-57747

PATIENT
  Sex: Female

DRUGS (9)
  1. TRACLEER [Suspect]
     Dosage: 62.5 MG, BID
     Route: 048
     Dates: start: 20110528, end: 20110617
  2. BERAPROST SODIUM [Concomitant]
  3. TADALAFIL [Concomitant]
  4. WARFARIN SODIUM [Concomitant]
  5. TRACLEER [Suspect]
     Dosage: 62.5 MG, QD
     Route: 048
     Dates: start: 20110425, end: 20110527
  6. BENIDIPINE HYDROCHLORIDE [Concomitant]
  7. TRACLEER [Suspect]
     Indication: PULMONARY HYPERTENSION
     Dosage: 62.5 MG, BID
     Route: 048
     Dates: start: 20110331, end: 20110424
  8. TORSEMIDE [Concomitant]
  9. OXYGEN [Concomitant]

REACTIONS (2)
  - PULMONARY OEDEMA [None]
  - LEFT VENTRICULAR FAILURE [None]
